FAERS Safety Report 12998805 (Version 1)
Quarter: 2016Q4

REPORT INFORMATION
  Report Type: Spontaneous
  Country: US (occurrence: US)
  Receive Date: 20161205
  Receipt Date: 20161205
  Transmission Date: 20170207
  Serious: Yes (Other)
  Sender: FDA-Public Use
  Company Number: US-PFIZER INC-2016556963

PATIENT
  Age: 64 Year

DRUGS (1)
  1. PIROXICAM. [Suspect]
     Active Substance: PIROXICAM

REACTIONS (4)
  - Cellulitis [Unknown]
  - Rash [Unknown]
  - Necrosis [Unknown]
  - Drug hypersensitivity [Unknown]
